FAERS Safety Report 24173162 (Version 2)
Quarter: 2024Q3

REPORT INFORMATION
  Report Type: Report from Study
  Country: KR (occurrence: KR)
  Receive Date: 20240805
  Receipt Date: 20240808
  Transmission Date: 20241017
  Serious: Yes (Life-Threatening, Hospitalization)
  Sender: PFIZER
  Company Number: KR-PFIZER INC-PV202400100244

PATIENT
  Age: 51 Year
  Sex: Female
  Weight: 55 kg

DRUGS (15)
  1. VINCRISTINE SULFATE [Suspect]
     Active Substance: VINCRISTINE SULFATE
     Indication: Diffuse large B-cell lymphoma
     Dosage: 1.4 MG/M2, ON DAYS 1-5 OF THE CYCLE
     Route: 042
     Dates: start: 20220408
  2. INVESTIGATIONAL PRODUCT [Suspect]
     Active Substance: INVESTIGATIONAL PRODUCT
     Indication: Diffuse large B-cell lymphoma
     Dosage: TAFASITAMAB VS PLACEBO
     Dates: start: 20220408, end: 20220506
  3. INVESTIGATIONAL PRODUCT [Suspect]
     Active Substance: INVESTIGATIONAL PRODUCT
     Dosage: TAFASITAMAB VS PLACEBO ONCE
     Route: 042
     Dates: start: 20220408, end: 20220408
  4. INVESTIGATIONAL PRODUCT [Suspect]
     Active Substance: INVESTIGATIONAL PRODUCT
     Dosage: TAFASITAMAB VS PLACEBO ONCE
     Route: 042
     Dates: start: 20220429, end: 20220429
  5. INVESTIGATIONAL PRODUCT [Suspect]
     Active Substance: INVESTIGATIONAL PRODUCT
     Indication: Diffuse large B-cell lymphoma
     Dosage: LENALIDOMIDE VS PLACEBO, 1X/DAY
     Route: 048
     Dates: start: 20220408, end: 20220507
  6. RITUXIMAB [Suspect]
     Active Substance: RITUXIMAB
     Indication: Diffuse large B-cell lymphoma
     Dosage: 375 MG/M2, ON DAYS 1-5 OF THE CYCLE
     Dates: start: 20220408
  7. CYCLOPHOSPHAMIDE [Suspect]
     Active Substance: CYCLOPHOSPHAMIDE
     Indication: Diffuse large B-cell lymphoma
     Dosage: 750 MG/M2, ON DAYS 1-5 OF THE CYCLE
     Dates: start: 20220408
  8. DOXORUBICIN [Suspect]
     Active Substance: DOXORUBICIN
     Indication: Diffuse large B-cell lymphoma
     Dosage: 50 MG/M2, ON DAYS 1-5 OF THE CYCLE
     Route: 042
     Dates: start: 20220408
  9. PREDNISOLONE [Suspect]
     Active Substance: PREDNISOLONE
     Indication: Diffuse large B-cell lymphoma
     Dosage: 100 MG, ON DAYS 1-5 OF THE CYCLE
     Route: 042
     Dates: start: 20220408
  10. SANCUSO [Concomitant]
     Active Substance: GRANISETRON
     Indication: Prophylaxis of nausea and vomiting
     Dosage: 34.3 MG
     Route: 062
     Dates: start: 20220408
  11. VASOPRESSIN [Concomitant]
     Active Substance: VASOPRESSIN
     Indication: Hypotension
     Dosage: UNK
     Route: 042
     Dates: start: 20220509, end: 20220509
  12. NORPIN [NOREPINEPHRINE] [Concomitant]
     Indication: Hypotension
     Dosage: UNK
     Route: 042
     Dates: start: 20220509
  13. FENTANYL [Concomitant]
     Active Substance: FENTANYL\FENTANYL CITRATE
     Indication: Pain
     Dosage: UNK
     Route: 062
     Dates: start: 20220509
  14. RAPISON [Concomitant]
     Indication: Adrenal insufficiency
     Dosage: 25 MG
     Route: 048
     Dates: start: 20220512
  15. ALBUMIN HUMAN [Concomitant]
     Active Substance: ALBUMIN HUMAN
     Indication: Hypoalbuminaemia
     Dosage: 100 ML
     Route: 042
     Dates: start: 20220508, end: 20220516

REACTIONS (1)
  - Neutropenic sepsis [Recovered/Resolved]

NARRATIVE: CASE EVENT DATE: 20220509
